FAERS Safety Report 18446877 (Version 1)
Quarter: 2020Q4

REPORT INFORMATION
  Report Type: Spontaneous
  Country: US (occurrence: US)
  Receive Date: 20201030
  Receipt Date: 20201030
  Transmission Date: 20210114
  Serious: No
  Sender: FDA-Public Use
  Company Number: None

PATIENT
  Age: 60 Year
  Sex: Male
  Weight: 80.1 kg

DRUGS (1)
  1. RITUXIMAB. [Suspect]
     Active Substance: RITUXIMAB
     Indication: RHEUMATOID ARTHRITIS
     Dosage: ?          OTHER FREQUENCY:Q14D X 2 DOSE Q6M;?
     Route: 042

REACTIONS (4)
  - Ear pruritus [None]
  - Pruritus [None]
  - Flushing [None]
  - Therapy interrupted [None]

NARRATIVE: CASE EVENT DATE: 20201027
